FAERS Safety Report 4433707-0 (Version None)
Quarter: 2004Q3

REPORT INFORMATION
  Report Type: 
  Country: None (occurrence: None)
  Receive Date: 20040824
  Receipt Date: 20040810
  Transmission Date: 20050211
  Serious: Yes (Hospitalization, Other)
  Sender: FDA-Public Use
  Company Number: 180971

PATIENT
  Age: 64 Year
  Sex: Female
  Weight: 86.1834 kg

DRUGS (6)
  1. AVONEX [Suspect]
     Indication: MULTIPLE SCLEROSIS
     Dosage: 30 MCG QW IM
     Route: 030
     Dates: start: 19980601, end: 20030901
  2. AVONEX [Suspect]
     Indication: MULTIPLE SCLEROSIS
     Dosage: 30 MCG QW IM
     Route: 030
     Dates: start: 20030901, end: 20030901
  3. UNIVASC [Concomitant]
  4. LASIX [Concomitant]
  5. BACLOFEN [Concomitant]
  6. REBIF [Concomitant]

REACTIONS (16)
  - ASTHENIA [None]
  - BLOOD CHOLESTEROL INCREASED [None]
  - CONDITION AGGRAVATED [None]
  - DRUG HYPERSENSITIVITY [None]
  - HAEMORRHOIDAL HAEMORRHAGE [None]
  - HEART RATE IRREGULAR [None]
  - HYPERSENSITIVITY [None]
  - MULTIPLE SCLEROSIS RELAPSE [None]
  - NEURALGIA [None]
  - OEDEMA PERIPHERAL [None]
  - PAIN [None]
  - PYREXIA [None]
  - SWOLLEN TONGUE [None]
  - TONGUE DISORDER [None]
  - URTICARIA [None]
  - VISION BLURRED [None]
